FAERS Safety Report 9180257 (Version 1)
Quarter: 2013Q1

REPORT INFORMATION
  Report Type: Spontaneous
  Country: US (occurrence: US)
  Receive Date: 20130322
  Receipt Date: 20130322
  Transmission Date: 20140127
  Serious: No
  Sender: FDA-Public Use
  Company Number: US-009507513-1303USA006527

PATIENT
  Sex: Female

DRUGS (12)
  1. VICTRELIS [Suspect]
     Indication: HEPATITIS C
     Dosage: 4 DF, TID
     Route: 048
     Dates: start: 201207, end: 201301
  2. PEGASYS [Suspect]
     Dosage: UNK
  3. REBETOL [Suspect]
     Dosage: UNK
     Route: 048
  4. WELLBUTRIN [Concomitant]
  5. TOPAMAX [Concomitant]
  6. OXYCODONE [Concomitant]
  7. NOVOLOG [Concomitant]
  8. LIDODERM [Concomitant]
  9. LANTUS [Concomitant]
  10. FLEXERIL [Concomitant]
  11. ASPIRIN [Concomitant]
  12. OMEGA-3 MARINE TRIGLYCERIDES [Concomitant]

REACTIONS (2)
  - Respiratory tract infection [Recovered/Resolved]
  - Viral load increased [Unknown]
